FAERS Safety Report 16839334 (Version 1)
Quarter: 2019Q3

REPORT INFORMATION
  Report Type: Spontaneous
  Country: US (occurrence: US)
  Receive Date: 20190923
  Receipt Date: 20190923
  Transmission Date: 20191005
  Serious: No
  Sender: FDA-Public Use
  Company Number: US-PFIZER INC-2019408538

PATIENT

DRUGS (3)
  1. NOVOCAINE [Suspect]
     Active Substance: PROCAINE
     Dosage: UNK
  2. BENZOCAINE. [Suspect]
     Active Substance: BENZOCAINE
     Dosage: UNK
  3. MORPHINE SULFATE. [Suspect]
     Active Substance: MORPHINE SULFATE
     Dosage: UNK

REACTIONS (1)
  - Drug hypersensitivity [Unknown]
